FAERS Safety Report 4781840-6 (Version None)
Quarter: 2005Q3

REPORT INFORMATION
  Report Type: 
  Country: None (occurrence: None)
  Receive Date: 20050927
  Receipt Date: 20050912
  Transmission Date: 20060218
  Serious: Yes (Life-Threatening, Hospitalization, Other)
  Sender: FDA-Public Use
  Company Number: USA0509107768

PATIENT
  Age: 65 Year
  Sex: Female
  Weight: 114 kg

DRUGS (3)
  1. HUMULIN N [Suspect]
     Indication: BLOOD GLUCOSE INCREASED
     Dates: start: 19860101, end: 20050801
  2. HUMULIN R [Suspect]
     Indication: BLOOD GLUCOSE INCREASED
     Dates: start: 19860101, end: 20050801
  3. HUMALOG MIX 75/25 [Suspect]
     Indication: BLOOD GLUCOSE INCREASED
     Dates: start: 20050801

REACTIONS (13)
  - ABASIA [None]
  - ARTHRITIS [None]
  - BLOOD GLUCOSE INCREASED [None]
  - CHONDROPATHY [None]
  - COMA [None]
  - CONDITION AGGRAVATED [None]
  - EMPHYSEMA [None]
  - MYOCARDIAL INFARCTION [None]
  - PHARMACEUTICAL PRODUCT COMPLAINT [None]
  - RESPIRATORY FAILURE [None]
  - SPEECH DISORDER [None]
  - TREMOR [None]
  - VISUAL ACUITY REDUCED [None]
